FAERS Safety Report 15112812 (Version 1)
Quarter: 2018Q3

REPORT INFORMATION
  Report Type: Spontaneous
  Country: US (occurrence: US)
  Receive Date: 20180705
  Receipt Date: 20180705
  Transmission Date: 20181010
  Serious: No
  Sender: FDA-Public Use
  Company Number: US-BRISTOL-MYERS SQUIBB COMPANY-BMS-2018-062287

PATIENT
  Sex: Male

DRUGS (1)
  1. WARFARIN SODIUM. [Suspect]
     Active Substance: WARFARIN SODIUM
     Indication: CEREBROVASCULAR ACCIDENT
     Dosage: 1 DF, UNK
     Route: 065
     Dates: start: 2010

REACTIONS (1)
  - International normalised ratio increased [Recovering/Resolving]
